FAERS Safety Report 10098387 (Version 1)
Quarter: 2014Q2

REPORT INFORMATION
  Report Type: Report from Study
  Country: FR (occurrence: FR)
  Receive Date: 20140423
  Receipt Date: 20140423
  Transmission Date: 20141212
  Serious: Yes (Hospitalization, Other)
  Sender: FDA-Public Use
  Company Number: PHHY2014FR048305

PATIENT
  Age: 48 Year
  Sex: Male

DRUGS (3)
  1. MYCOPHENOLIC ACID [Suspect]
     Indication: IMMUNOSUPPRESSION
  2. CORTICOSTEROIDS [Concomitant]
     Indication: IMMUNOSUPPRESSION
     Dosage: UNK UKN, UNK
  3. CICLOSPORIN [Concomitant]
     Indication: IMMUNOSUPPRESSION
     Dosage: UNK UKN, UNK

REACTIONS (7)
  - Congenital cystic kidney disease [Unknown]
  - Kidney fibrosis [Unknown]
  - Glomerulonephritis [Unknown]
  - Chronic allograft nephropathy [Unknown]
  - Renal tubular atrophy [Unknown]
  - Renal tubular necrosis [Unknown]
  - Kidney transplant rejection [Recovered/Resolved]
